FAERS Safety Report 9374786 (Version 1)
Quarter: 2013Q2

REPORT INFORMATION
  Report Type: Spontaneous
  Country: US (occurrence: US)
  Receive Date: 20130628
  Receipt Date: 20130628
  Transmission Date: 20140414
  Serious: Yes (Other)
  Sender: FDA-Public Use
  Company Number: US-JNJFOC-20130616240

PATIENT
  Sex: 0

DRUGS (4)
  1. DOXORUBICIN [Suspect]
     Indication: SARCOMA
     Route: 042
  2. TEMSIROLIMUS [Suspect]
     Indication: SARCOMA
     Route: 042
  3. TEMSIROLIMUS [Suspect]
     Indication: SARCOMA
     Route: 042
  4. DIPHENHYDRAMINE [Concomitant]
     Indication: PROPHYLAXIS
     Route: 065

REACTIONS (2)
  - Hyperlipidaemia [Recovered/Resolved]
  - Off label use [Unknown]
